FAERS Safety Report 24572608 (Version 1)
Quarter: 2024Q4

REPORT INFORMATION
  Report Type: Spontaneous
  Country: PH (occurrence: PH)
  Receive Date: 20241101
  Receipt Date: 20241101
  Transmission Date: 20250115
  Serious: Yes (Death)
  Sender: PFIZER
  Company Number: PH-PFIZER INC-PV202400139650

PATIENT
  Sex: Female

DRUGS (1)
  1. LORLATINIB [Suspect]
     Active Substance: LORLATINIB
     Dosage: 100 MG

REACTIONS (3)
  - Acute respiratory distress syndrome [Fatal]
  - Pneumonia [Fatal]
  - COVID-19 [Unknown]
